FAERS Safety Report 18854122 (Version 1)
Quarter: 2021Q1

REPORT INFORMATION
  Report Type: Report from Study
  Country: KR (occurrence: KR)
  Receive Date: 20210205
  Receipt Date: 20210205
  Transmission Date: 20210420
  Serious: Yes (Hospitalization)
  Sender: FDA-Public Use
  Company Number: KR-EISAI MEDICAL RESEARCH-EC-2021-087492

PATIENT
  Age: 80 Year
  Sex: Male
  Weight: 42.8 kg

DRUGS (12)
  1. LENVIMA [Suspect]
     Active Substance: LENVATINIB
     Route: 048
     Dates: start: 20210201
  2. LENVIMA [Suspect]
     Active Substance: LENVATINIB
     Indication: HEPATOCELLULAR CARCINOMA
     Route: 048
     Dates: start: 20201218, end: 20210119
  3. LENVIMA [Suspect]
     Active Substance: LENVATINIB
     Route: 048
     Dates: start: 20210129, end: 20210129
  4. LENVIMA [Suspect]
     Active Substance: LENVATINIB
     Route: 048
     Dates: start: 20210125, end: 20210128
  5. GLIPTIDE [Concomitant]
     Indication: PEPTIC ULCER
     Route: 048
     Dates: start: 20201102
  6. ALDACTONE [Concomitant]
     Active Substance: SPIRONOLACTONE
     Indication: ACUTE RESPIRATORY FAILURE
     Route: 048
     Dates: start: 20201029
  7. LASIX [Concomitant]
     Active Substance: FUROSEMIDE
     Indication: ACUTE RESPIRATORY FAILURE
     Route: 048
     Dates: start: 20201113
  8. LENVIMA [Suspect]
     Active Substance: LENVATINIB
     Route: 048
     Dates: start: 20210130, end: 20210130
  9. MAGMIL [Concomitant]
     Active Substance: MAGNESIUM HYDROXIDE
     Indication: DEFAECATION DISORDER
     Route: 048
     Dates: start: 20201102
  10. GASMOTIN SR [Concomitant]
     Indication: DYSPEPSIA
     Route: 048
     Dates: start: 20201102
  11. DILATREND [Concomitant]
     Active Substance: CARVEDILOL
     Indication: HYPERTENSION
     Route: 048
     Dates: start: 20201113
  12. NEXIUM [Concomitant]
     Active Substance: ESOMEPRAZOLE MAGNESIUM
     Indication: PEPTIC ULCER
     Route: 048
     Dates: start: 20201028

REACTIONS (1)
  - Pneumonia [Recovering/Resolving]

NARRATIVE: CASE EVENT DATE: 202101
